FAERS Safety Report 5033378-9 (Version None)
Quarter: 2006Q2

REPORT INFORMATION
  Report Type: 
  Country: None (occurrence: None)
  Receive Date: 20060620
  Receipt Date: 20060607
  Transmission Date: 20061013
  Serious: Yes (Other)
  Sender: FDA-Public Use
  Company Number: 2006073167

PATIENT

DRUGS (2)
  1. EPIRUBICIN [Suspect]
     Indication: ILL-DEFINED DISORDER
  2. DRUG, UNSPECIFIED (DRUG,UNSPECIFIED) [Concomitant]

REACTIONS (1)
  - INTERSTITIAL LUNG DISEASE [None]
